FAERS Safety Report 11674312 (Version 4)
Quarter: 2016Q1

REPORT INFORMATION
  Report Type: Spontaneous
  Country: US (occurrence: US)
  Receive Date: 20151028
  Receipt Date: 20160304
  Transmission Date: 20160525
  Serious: Yes (Hospitalization)
  Sender: FDA-Public Use
  Company Number: US-ELI_LILLY_AND_COMPANY-US201510005620

PATIENT
  Sex: Female
  Weight: 53.97 kg

DRUGS (3)
  1. ADCIRCA [Suspect]
     Active Substance: TADALAFIL
     Dosage: 2 DF, QD
     Route: 065
  2. TYVASO [Suspect]
     Active Substance: TREPROSTINIL
     Indication: PRODUCT USED FOR UNKNOWN INDICATION
     Dosage: 1 DF, QID
     Route: 055
     Dates: start: 20151013
  3. ADCIRCA [Suspect]
     Active Substance: TADALAFIL
     Indication: PRODUCT USED FOR UNKNOWN INDICATION
     Dosage: UNK UNK, QD
     Route: 065

REACTIONS (8)
  - Pneumonia [Unknown]
  - Cough [Unknown]
  - Peripheral swelling [Unknown]
  - Joint swelling [Unknown]
  - Dyspnoea [Unknown]
  - Chest discomfort [Unknown]
  - Headache [Unknown]
  - Sinus disorder [Unknown]
